FAERS Safety Report 14305133 (Version 1)
Quarter: 2017Q4

REPORT INFORMATION
  Report Type: Spontaneous
  Country: JP (occurrence: JP)
  Receive Date: 20171219
  Receipt Date: 20171219
  Transmission Date: 20180321
  Serious: Yes (Hospitalization, Other)
  Sender: FDA-Public Use
  Company Number: JP-OTSUKA-BJ20101265

PATIENT
  Age: 39 Year
  Sex: Female

DRUGS (4)
  1. AMOBAN [Suspect]
     Active Substance: ZOPICLONE
     Indication: INSOMNIA
     Dosage: 7.5 MG, QD
     Route: 048
     Dates: start: 20090731, end: 20100212
  2. ABILIFY [Suspect]
     Active Substance: ARIPIPRAZOLE
     Dosage: 24 MG, QD
     Route: 048
     Dates: start: 20090911, end: 20091118
  3. ABILIFY [Suspect]
     Active Substance: ARIPIPRAZOLE
     Indication: SCHIZOPHRENIA
     Dosage: 12 MG, QD
     Route: 048
     Dates: start: 20090731, end: 20090910
  4. ABILIFY [Suspect]
     Active Substance: ARIPIPRAZOLE
     Dosage: 12 MG, QD
     Route: 048
     Dates: start: 20091119, end: 20100212

REACTIONS (4)
  - Maternal exposure during pregnancy [Recovered/Resolved]
  - Surgery [Unknown]
  - Abortion missed [Recovering/Resolving]
  - Akathisia [Recovered/Resolved]

NARRATIVE: CASE EVENT DATE: 20091119
